FAERS Safety Report 7905169-X (Version None)
Quarter: 2011Q4

REPORT INFORMATION
  Report Type: 
  Country: None (occurrence: None)
  Receive Date: 20111109
  Receipt Date: 20111107
  Transmission Date: 20120403
  Serious: Yes (Other)
  Sender: FDA-Public Use
  Company Number: US-BAYER-2011-108036

PATIENT
  Sex: Female

DRUGS (1)
  1. MIRENA [Suspect]
     Dosage: UNK
     Dates: start: 20110801

REACTIONS (5)
  - FATIGUE [None]
  - NAUSEA [None]
  - MENSTRUATION IRREGULAR [None]
  - MALAISE [None]
  - VAGINAL HAEMORRHAGE [None]
